FAERS Safety Report 6844321-1 (Version None)
Quarter: 2010Q2

REPORT INFORMATION
  Report Type: 
  Country: None (occurrence: None)
  Receive Date: 20100629
  Receipt Date: 20100405
  Transmission Date: 20101027
  Serious: No
  Sender: FDA-Public Use
  Company Number: US-WYE-H14523110

PATIENT
  Age: 57 Year
  Sex: Female

DRUGS (14)
  1. PRISTIQ [Suspect]
     Indication: DEPRESSION
     Dosage: 50 MG 1X PER 1 DAY
     Dates: start: 20100402
  2. IMIPRAMINE [Concomitant]
  3. DIAZEPAM [Concomitant]
  4. DEXEDRINE (DEXAMEFETAMINE SULFATE) [Concomitant]
  5. BUSPAR [Concomitant]
  6. CYCLOBENZAPRINE [Concomitant]
  7. FUROSEMIDE [Concomitant]
  8. LEVOTHYROXINE SODIUM [Concomitant]
  9. PROPOXYPHENE HCL [Concomitant]
  10. HYOSCYAMINE (HYOSCYAMINE) [Concomitant]
  11. ADVAIR DISKUS 100/50 [Concomitant]
  12. PROVENTIL [Concomitant]
  13. DULCOLAX [Concomitant]
  14. ABILIFY [Concomitant]

REACTIONS (2)
  - MEDICATION RESIDUE [None]
  - WRONG TECHNIQUE IN DRUG USAGE PROCESS [None]
